FAERS Safety Report 24572752 (Version 1)
Quarter: 2024Q4

REPORT INFORMATION
  Report Type: Spontaneous
  Country: US (occurrence: US)
  Receive Date: 20241101
  Receipt Date: 20241101
  Transmission Date: 20250115
  Serious: No
  Sender: BRISTOL-MYERS SQUIBB COMPANY
  Company Number: US-EXELIXIS-EXL-2024-001544

PATIENT
  Age: 89 Year
  Sex: Female
  Weight: 67.12 kg

DRUGS (2)
  1. OPDIVO [Suspect]
     Active Substance: NIVOLUMAB
     Indication: Product used for unknown indication
  2. CABOMETYX [Suspect]
     Active Substance: CABOZANTINIB S-MALATE
     Indication: Renal cancer
     Dosage: 20 MG, QOD INITIALLY, THEN 1 TABLET DAILY AS DIRECTED
     Dates: start: 20240919

REACTIONS (2)
  - Amnesia [Unknown]
  - Blood glucose increased [Unknown]
